FAERS Safety Report 4855199-X (Version None)
Quarter: 2005Q4

REPORT INFORMATION
  Report Type: 
  Country: None (occurrence: None)
  Receive Date: 20051215
  Receipt Date: 20051209
  Transmission Date: 20060501
  Serious: Yes (Other)
  Sender: FDA-Public Use
  Company Number: CH-MERCK-0512CHE00016

PATIENT
  Age: 87 Year
  Sex: Female
  Weight: 56 kg

DRUGS (5)
  1. MODURETIC 5-50 [Concomitant]
     Indication: HYPERTENSIVE HEART DISEASE
     Route: 048
  2. XENALON [Concomitant]
     Indication: HYPERTENSIVE HEART DISEASE
     Route: 048
  3. ASPIRIN [Concomitant]
     Route: 048
  4. COZAAR [Suspect]
     Indication: HYPERTENSIVE HEART DISEASE
     Route: 048
     Dates: start: 20050627
  5. COZAAR [Suspect]
     Route: 048
     Dates: start: 19970101, end: 20050626

REACTIONS (8)
  - ANGIONEUROTIC OEDEMA [None]
  - BURNING SENSATION MUCOSAL [None]
  - DYSPHAGIA [None]
  - HYPERSENSITIVITY [None]
  - RASH [None]
  - SWELLING FACE [None]
  - SWOLLEN TONGUE [None]
  - TYPE I HYPERSENSITIVITY [None]
